FAERS Safety Report 9852488 (Version 1)
Quarter: 2014Q1

REPORT INFORMATION
  Report Type: Spontaneous
  Country: US (occurrence: None)
  Receive Date: 20140128
  Receipt Date: 20140128
  Transmission Date: 20141002
  Serious: Yes (Life-Threatening, Hospitalization, Disabling, Other)
  Sender: FDA-Public Use
  Company Number: None

PATIENT
  Age: 46 Week
  Sex: Female
  Weight: 63.5 kg

DRUGS (1)
  1. CLOBETASOL [Suspect]
     Indication: PSORIASIS

REACTIONS (1)
  - Lip and/or oral cavity cancer [None]
